FAERS Safety Report 5937063-8 (Version None)
Quarter: 2008Q4

REPORT INFORMATION
  Report Type: 
  Country: None (occurrence: None)
  Receive Date: 20081031
  Receipt Date: 20081023
  Transmission Date: 20090506
  Serious: Yes (Other)
  Sender: FDA-Public Use
  Company Number: JP-BAYER-200812563BYL

PATIENT
  Age: 73 Year
  Sex: Male

DRUGS (7)
  1. ASPIRIN [Suspect]
     Indication: DRUG USE FOR UNKNOWN INDICATION
     Route: 048
     Dates: start: 20081016
  2. SIGMART [Suspect]
     Indication: DRUG USE FOR UNKNOWN INDICATION
     Route: 048
  3. ACARDI [Suspect]
     Indication: DRUG USE FOR UNKNOWN INDICATION
     Route: 048
  4. LANSOPRAZOLE [Suspect]
     Indication: DRUG USE FOR UNKNOWN INDICATION
     Route: 048
  5. SAKLOFT [Suspect]
     Indication: DRUG USE FOR UNKNOWN INDICATION
     Route: 048
  6. CHINESE MEDICINES [Suspect]
     Indication: DRUG USE FOR UNKNOWN INDICATION
     Route: 048
  7. PANALDINE [Concomitant]
     Indication: DRUG USE FOR UNKNOWN INDICATION
     Route: 048
     Dates: end: 20081005

REACTIONS (1)
  - WHITE BLOOD CELL COUNT DECREASED [None]
